FAERS Safety Report 5611905-8 (Version None)
Quarter: 2008Q1

REPORT INFORMATION
  Report Type: 
  Country: None (occurrence: None)
  Receive Date: 20080128
  Receipt Date: 20060405
  Transmission Date: 20080703
  Serious: Yes (Hospitalization)
  Sender: FDA-Public Use
  Company Number: DSA_27982_2006

PATIENT
  Sex: Male
  Weight: 98 kg

DRUGS (5)
  1. DILTIAZEM HCL [Suspect]
     Indication: HYPERTENSION
     Dosage: (360 MG QD ORAL), (180 MG QD)
     Route: 048
     Dates: start: 20051214, end: 20060119
  2. DILTIAZEM HCL [Suspect]
     Indication: HYPERTENSION
     Dosage: (360 MG QD ORAL), (180 MG QD)
     Route: 048
     Dates: start: 20060120, end: 20060320
  3. ASPIRIN [Concomitant]
  4. ACTOS [Concomitant]
  5. METFORMIN HCL [Concomitant]

REACTIONS (7)
  - ACUTE MYOCARDIAL INFARCTION [None]
  - CORONARY ARTERY DISEASE [None]
  - DYSPNOEA [None]
  - FATIGUE [None]
  - MYOCARDIAL ISCHAEMIA [None]
  - OEDEMA PERIPHERAL [None]
  - ORTHOPNOEA [None]
